FAERS Safety Report 4849340-2 (Version None)
Quarter: 2005Q4

REPORT INFORMATION
  Report Type: 
  Country: None (occurrence: None)
  Receive Date: 20051207
  Receipt Date: 20051129
  Transmission Date: 20060501
  Serious: Yes (Other)
  Sender: FDA-Public Use
  Company Number: 2005060682

PATIENT
  Age: 52 Year
  Sex: Female

DRUGS (5)
  1. BEXTRA [Suspect]
     Indication: ILL-DEFINED DISORDER
     Dosage: 20 MG (10 MG, 2 IN 1 D),
     Route: 048
     Dates: start: 20041001, end: 20041014
  2. PREDNISONE [Suspect]
     Indication: HYPERSENSITIVITY
     Dates: start: 20041001, end: 20041001
  3. SYNTHROID [Concomitant]
  4. XANAX [Concomitant]
  5. BACTRIM [Concomitant]

REACTIONS (4)
  - DRUG HYPERSENSITIVITY [None]
  - HEADACHE [None]
  - OEDEMA PERIPHERAL [None]
  - PITYRIASIS ROSEA [None]
